FAERS Safety Report 9915341 (Version 2)
Quarter: 2015Q4

REPORT INFORMATION
  Report Type: Report from Study
  Country: US (occurrence: US)
  Receive Date: 20140221
  Receipt Date: 20151026
  Transmission Date: 20160305
  Serious: Yes (Other)
  Sender: FDA-Public Use
  Company Number: US-ROCHE-1233760

PATIENT
  Sex: Male

DRUGS (12)
  1. AVASTIN [Suspect]
     Active Substance: BEVACIZUMAB
     Indication: DIABETIC RETINAL OEDEMA
     Dosage: EVERY 4-6 MONTHS FOR 1 YEAR
     Route: 050
     Dates: start: 20121023
  2. CARVEDILOL. [Concomitant]
     Active Substance: CARVEDILOL
     Route: 065
  3. NOVOLOG [Concomitant]
     Active Substance: INSULIN ASPART
  4. ASPIRIN. [Concomitant]
     Active Substance: ASPIRIN
  5. TEKTURNA [Concomitant]
     Active Substance: ALISKIREN HEMIFUMARATE
  6. LIPITOR [Concomitant]
     Active Substance: ATORVASTATIN CALCIUM
  7. ENALAPRIL MALEATE. [Concomitant]
     Active Substance: ENALAPRIL MALEATE
  8. FUROSEMIDE. [Concomitant]
     Active Substance: FUROSEMIDE
  9. PROPARACAINE [Concomitant]
     Active Substance: PROPARACAINE
     Route: 061
  10. MYDRIACYL [Concomitant]
     Active Substance: TROPICAMIDE
     Route: 065
  11. AMLODIPINE [Concomitant]
     Active Substance: AMLODIPINE BESYLATE
  12. LANTUS [Concomitant]
     Active Substance: INSULIN GLARGINE

REACTIONS (5)
  - Metamorphopsia [Unknown]
  - Diabetic retinal oedema [Unknown]
  - Vision blurred [Unknown]
  - Product use issue [Unknown]
  - Drug ineffective [Unknown]
